FAERS Safety Report 9554082 (Version 2)
Quarter: 2013Q3

REPORT INFORMATION
  Report Type: Report from Study
  Country: US (occurrence: US)
  Receive Date: 20130925
  Receipt Date: 20130925
  Transmission Date: 20140515
  Serious: Yes (Other)
  Sender: FDA-Public Use
  Company Number: US-ABBVIE-12P-163-0912384-00

PATIENT
  Sex: Female

DRUGS (4)
  1. HUMIRA [Suspect]
     Indication: PSORIASIS
     Dates: start: 20110208, end: 20120326
  2. ENBREL [Concomitant]
     Indication: PSORIASIS
     Route: 058
     Dates: start: 20090106, end: 201101
  3. TOPICORT [Concomitant]
     Indication: PSORIASIS
     Dates: start: 201105
  4. DOVONEX [Concomitant]
     Indication: PSORIASIS
     Dates: start: 200905

REACTIONS (2)
  - Encephalitis [Unknown]
  - Multiple sclerosis [Unknown]
